FAERS Safety Report 19521146 (Version 2)
Quarter: 2021Q3

REPORT INFORMATION
  Report Type: Spontaneous
  Country: US (occurrence: US)
  Receive Date: 20210712
  Receipt Date: 20210904
  Transmission Date: 20211014
  Serious: Yes (Other)
  Sender: FDA-Public Use
  Company Number: NVSC2021US134153

PATIENT
  Sex: Male

DRUGS (1)
  1. BEOVU [Suspect]
     Active Substance: BROLUCIZUMAB-DBLL
     Indication: NEOVASCULAR AGE-RELATED MACULAR DEGENERATION
     Dosage: 6 MG
     Route: 047

REACTIONS (5)
  - Vision blurred [Unknown]
  - Iridocyclitis [Unknown]
  - Retinal vasculitis [Unknown]
  - Retinal haemorrhage [Unknown]
  - Visual acuity reduced [Unknown]
